FAERS Safety Report 14506146 (Version 3)
Quarter: 2020Q2

REPORT INFORMATION
  Report Type: Spontaneous
  Country: US (occurrence: US)
  Receive Date: 20180208
  Receipt Date: 20200609
  Transmission Date: 20200713
  Serious: Yes (Hospitalization)
  Sender: FDA-Public Use
  Company Number: US-TEVA-2018-US-855774

PATIENT
  Age: 61 Year
  Sex: Male

DRUGS (11)
  1. DIAZEPAM. [Concomitant]
     Active Substance: DIAZEPAM
     Route: 065
  2. ACETAMINOPHEN. [Concomitant]
     Active Substance: ACETAMINOPHEN
     Dosage: AS NEEDED
     Route: 065
  3. CAFFEINE. [Concomitant]
     Active Substance: CAFFEINE
     Indication: INSOMNIA
     Dosage: 200 MILLIGRAM DAILY;
     Route: 065
  4. BACLOFEN. [Suspect]
     Active Substance: BACLOFEN
     Indication: SPINAL STENOSIS
     Dosage: 60 MILLIGRAM DAILY; THREE TIMES DAILY (PRESCRIBED)
     Route: 050
  5. BACLOFEN. [Suspect]
     Active Substance: BACLOFEN
     Dosage: 10 MILLIGRAM DAILY;
     Route: 050
  6. ESCITALOPRAM [Concomitant]
     Active Substance: ESCITALOPRAM OXALATE
     Dosage: 10 MILLIGRAM DAILY;
     Route: 065
  7. DIPHENHYDRAMINE. [Concomitant]
     Active Substance: DIPHENHYDRAMINE
     Indication: INSOMNIA
     Route: 065
  8. MELOXICAM. [Concomitant]
     Active Substance: MELOXICAM
     Dosage: 15 MILLIGRAM DAILY;
     Route: 065
  9. TETRAHYDROCANNABINOL [Concomitant]
     Active Substance: DRONABINOL
     Route: 065
  10. PREGABALIN. [Concomitant]
     Active Substance: PREGABALIN
     Dosage: 150 MILLIGRAM DAILY;
     Route: 065
  11. HYDROCODONE [Concomitant]
     Active Substance: HYDROCODONE
     Dosage: AS NEEDED
     Route: 065

REACTIONS (15)
  - Mydriasis [Recovering/Resolving]
  - Blood pressure increased [Recovering/Resolving]
  - Confusional state [Recovering/Resolving]
  - Speech disorder [Recovering/Resolving]
  - Overdose [Unknown]
  - Aggression [Recovering/Resolving]
  - Intentional product misuse [Unknown]
  - Agitation [Recovering/Resolving]
  - Insomnia [Recovering/Resolving]
  - Delirium [Recovering/Resolving]
  - Dry mouth [Recovering/Resolving]
  - Blood creatine phosphokinase increased [Recovering/Resolving]
  - Drug withdrawal syndrome [Recovering/Resolving]
  - Hallucinations, mixed [Recovering/Resolving]
  - Mental status changes [Recovering/Resolving]
